FAERS Safety Report 5105872-3 (Version None)
Quarter: 2006Q3

REPORT INFORMATION
  Report Type: 
  Country: None (occurrence: None)
  Receive Date: 20060915
  Receipt Date: 20060905
  Transmission Date: 20061208
  Serious: Yes (Hospitalization)
  Sender: FDA-Public Use
  Company Number: FR-GLAXOSMITHKLINE-B0437098A

PATIENT
  Age: 86 Year
  Sex: Female

DRUGS (7)
  1. DEROXAT [Suspect]
     Indication: DEMENTIA ALZHEIMER'S TYPE
     Dosage: 10MG PER DAY
     Route: 048
  2. ALDACTAZINE [Suspect]
     Indication: PULMONARY EMBOLISM
     Dosage: 1UNIT PER DAY
     Route: 048
  3. DI ANTALVIC [Suspect]
     Indication: BACK PAIN
     Route: 048
     Dates: start: 20060612, end: 20060618
  4. VOLTAREN [Suspect]
     Indication: BACK PAIN
     Route: 048
     Dates: start: 20060612, end: 20060618
  5. ARICEPT [Suspect]
     Indication: DEMENTIA ALZHEIMER'S TYPE
     Route: 048
  6. PREVISCAN [Concomitant]
  7. ATHYMIL [Concomitant]

REACTIONS (7)
  - ABDOMINAL DISTENSION [None]
  - ANOREXIA [None]
  - ASTHENIA [None]
  - CONSTIPATION [None]
  - DIARRHOEA [None]
  - FAECALITH [None]
  - INFLAMMATION [None]
